FAERS Safety Report 5073026-5 (Version None)
Quarter: 2006Q3

REPORT INFORMATION
  Report Type: 
  Country: None (occurrence: None)
  Receive Date: 20060802
  Receipt Date: 20060721
  Transmission Date: 20061208
  Serious: Yes (Hospitalization)
  Sender: FDA-Public Use
  Company Number: 0602841US

PATIENT
  Age: 66 Year
  Sex: Female

DRUGS (1)
  1. BOTOX [Suspect]
     Indication: URINARY INCONTINENCE

REACTIONS (3)
  - BLADDER PAIN [None]
  - SUICIDAL IDEATION [None]
  - URINARY RETENTION [None]
